FAERS Safety Report 15375367 (Version 3)
Quarter: 2019Q1

REPORT INFORMATION
  Report Type: Spontaneous
  Country: US (occurrence: US)
  Receive Date: 20180912
  Receipt Date: 20190212
  Transmission Date: 20190417
  Serious: No
  Sender: FDA-Public Use
  Company Number: US-SA-2018SA254978

PATIENT
  Age: 68 Year
  Sex: Male

DRUGS (2)
  1. DUPIXENT [Suspect]
     Active Substance: DUPILUMAB
     Dosage: 300 MG, QOW
     Route: 058
     Dates: start: 2018
  2. DUPIXENT [Suspect]
     Active Substance: DUPILUMAB
     Indication: PRODUCT USED FOR UNKNOWN INDICATION
     Dosage: 600 MG, ONCE
     Route: 058
     Dates: start: 201805, end: 201805

REACTIONS (3)
  - Sinus disorder [Not Recovered/Not Resolved]
  - Injection site paraesthesia [Unknown]
  - Condition aggravated [Unknown]

NARRATIVE: CASE EVENT DATE: 2018
